FAERS Safety Report 18702786 (Version 1)
Quarter: 2021Q1

REPORT INFORMATION
  Report Type: Spontaneous
  Country: US (occurrence: US)
  Receive Date: 20210105
  Receipt Date: 20210105
  Transmission Date: 20210419
  Serious: No
  Sender: FDA-Public Use
  Company Number: US-MERZ PHARMACEUTICALS GMBH-20-04525

PATIENT
  Age: 58 Year
  Sex: Male

DRUGS (1)
  1. XEOMIN [Suspect]
     Active Substance: INCOBOTULINUMTOXINA
     Indication: PRODUCT USED FOR UNKNOWN INDICATION

REACTIONS (5)
  - Skin exfoliation [Not Recovered/Not Resolved]
  - Burning sensation [Unknown]
  - Swelling [Recovering/Resolving]
  - Dry eye [Unknown]
  - Dry skin [Unknown]
